FAERS Safety Report 6961747-6 (Version None)
Quarter: 2010Q3

REPORT INFORMATION
  Report Type: 
  Country: None (occurrence: None)
  Receive Date: 20100901
  Receipt Date: 20100823
  Transmission Date: 20110219
  Serious: Yes (Hospitalization)
  Sender: FDA-Public Use
  Company Number: PHHY2010MX28780

PATIENT
  Age: 80 Year
  Sex: Female

DRUGS (3)
  1. DIOVAN HCT [Suspect]
     Indication: HYPERTENSION
     Dosage: 1 TABLET (160/25 MG) DAILY
     Route: 048
     Dates: start: 20020501, end: 20090310
  2. DIOVAN HCT [Suspect]
     Dosage: 1 TABLET (160/25 MG) DAILY
     Route: 048
     Dates: start: 20090401
  3. BI-EUGLUCON [Concomitant]
     Dosage: UNK
     Dates: end: 20090310

REACTIONS (3)
  - CEREBROVASCULAR ACCIDENT [None]
  - DIABETIC COMA [None]
  - TREATMENT NONCOMPLIANCE [None]
